FAERS Safety Report 5397934-0 (Version None)
Quarter: 2007Q3

REPORT INFORMATION
  Report Type: 
  Country: None (occurrence: None)
  Receive Date: 20070726
  Receipt Date: 20070719
  Transmission Date: 20080115
  Serious: Yes (Other)
  Sender: FDA-Public Use
  Company Number: JP-SANOFI-SYNTHELABO-A01200708054

PATIENT
  Age: 78 Year
  Sex: Male

DRUGS (2)
  1. BICALUTAMIDE [Suspect]
     Route: 065
  2. LEUPROLIDE ACETATE [Suspect]
     Route: 065

REACTIONS (1)
  - CUSHING'S SYNDROME [None]
